FAERS Safety Report 13459675 (Version 1)
Quarter: 2017Q2

REPORT INFORMATION
  Report Type: Spontaneous
  Country: SE (occurrence: SE)
  Receive Date: 20170419
  Receipt Date: 20170419
  Transmission Date: 20170830
  Serious: Yes (Other)
  Sender: FDA-Public Use
  Company Number: SE-IPCA LABORATORIES LIMITED-IPC201704-000570

PATIENT
  Age: 42 Year
  Sex: Female

DRUGS (7)
  1. RINEXIN [Suspect]
     Active Substance: PHENYLPROPANOLAMINE
  2. TAVEGYL [Suspect]
     Active Substance: CLEMASTINE FUMARATE
  3. SUMATRIPTAN. [Suspect]
     Active Substance: SUMATRIPTAN
  4. LERGIGAN COMP [Suspect]
     Active Substance: CAFFEINE\EPHEDRINE\PROMETHAZINE
  5. CETIRIZINE [Suspect]
     Active Substance: CETIRIZINE HYDROCHLORIDE
  6. ZYBAN [Suspect]
     Active Substance: BUPROPION HYDROCHLORIDE
  7. IMIGRAN [Suspect]
     Active Substance: SUMATRIPTAN SUCCINATE

REACTIONS (9)
  - Headache [Recovered/Resolved]
  - Palpitations [Recovered/Resolved]
  - Feeling of body temperature change [Recovered/Resolved]
  - Chills [Recovered/Resolved]
  - Drug interaction [Recovered/Resolved]
  - Anxiety [Recovered/Resolved]
  - Nausea [Recovered/Resolved]
  - Muscle spasms [Recovered/Resolved]
  - Dizziness [Recovered/Resolved]
